FAERS Safety Report 8914833 (Version 2)
Quarter: 2012Q4

REPORT INFORMATION
  Report Type: Report from Study
  Country: US (occurrence: US)
  Receive Date: 20121116
  Receipt Date: 20121227
  Transmission Date: 20130627
  Serious: Yes (Hospitalization, Other)
  Sender: FDA-Public Use
  Company Number: US-ABBOTT-12P-163-0999605-00

PATIENT
  Age: 64 Year
  Sex: Male

DRUGS (1)
  1. HUMIRA [Suspect]
     Indication: RHEUMATOID ARTHRITIS
     Route: 050
     Dates: start: 201008

REACTIONS (3)
  - Arterial occlusive disease [Recovering/Resolving]
  - Hernia [Recovering/Resolving]
  - Myocardial infarction [Recovering/Resolving]
